FAERS Safety Report 7587454 (Version 3)
Quarter: 2012Q4

REPORT INFORMATION
  Report Type: 
  Country: GB (occurrence: GB)
  Receive Date: 20100915
  Receipt Date: 20121003
  Transmission Date: 20130627
  Serious: Yes (Hospitalization, Congenital Anomaly)
  Sender: FDA-Public Use
  Company Number: GB-PFIZER INC-2010112065

PATIENT
  Sex: Male
  Weight: 7.4 kg

DRUGS (7)
  1. SERTRALINE HCL [Suspect]
     Dosage: UNK
     Route: 064
  2. NORETHISTERONE [Suspect]
     Route: 064
  3. ARIPIPRAZOLE [Suspect]
     Route: 064
  4. DIHYDROCODEINE [Suspect]
     Route: 064
  5. LAMICTAL [Suspect]
     Indication: EPILEPSY
     Dosage: 400 mg, 2x/day
     Route: 064
     Dates: start: 2004
  6. LANSOPRAZOLE [Suspect]
     Route: 064
  7. PROPRANOLOL HYDROCHLORIDE [Suspect]
     Route: 064

REACTIONS (4)
  - Foetal exposure during pregnancy [Unknown]
  - Atrial septal defect [Recovered/Resolved]
  - Premature baby [Recovered/Resolved]
  - Ventricular septal defect [Recovered/Resolved]
